FAERS Safety Report 4278083-1 (Version None)
Quarter: 2004Q1

REPORT INFORMATION
  Report Type: 
  Country: None (occurrence: None)
  Receive Date: 20040121
  Receipt Date: 20030730
  Transmission Date: 20041129
  Serious: Yes (Hospitalization)
  Sender: FDA-Public Use
  Company Number: 2003-07-3101

PATIENT
  Age: 26 Year
  Sex: Female

DRUGS (1)
  1. SUBUTEX [Suspect]
     Dosage: 16MG BID INTRAVENOUS
     Route: 042
     Dates: start: 20021115, end: 20030215

REACTIONS (6)
  - DRUG ABUSER [None]
  - DRUG DEPENDENCE [None]
  - ERYSIPELAS [None]
  - INFLAMMATION LOCALISED [None]
  - INTENTIONAL MISUSE [None]
  - MEDICATION ERROR [None]
